FAERS Safety Report 10880074 (Version 1)
Quarter: 2015Q1

REPORT INFORMATION
  Report Type: Spontaneous
  Country: US (occurrence: US)
  Receive Date: 20150302
  Receipt Date: 20150302
  Transmission Date: 20150721
  Serious: No
  Sender: FDA-Public Use
  Company Number: US-PFIZER INC-2015070537

PATIENT
  Sex: Male

DRUGS (2)
  1. LIPITOR [Suspect]
     Active Substance: ATORVASTATIN CALCIUM
     Dosage: 80 MG, 1X/DAY
  2. ZETIA [Suspect]
     Active Substance: EZETIMIBE
     Dosage: 10 MG, UNK

REACTIONS (2)
  - Blood cholesterol decreased [Unknown]
  - Low density lipoprotein decreased [Unknown]
